FAERS Safety Report 18471662 (Version 1)
Quarter: 2020Q4

REPORT INFORMATION
  Report Type: Spontaneous
  Country: NL (occurrence: NL)
  Receive Date: 20201105
  Receipt Date: 20201105
  Transmission Date: 20210114
  Serious: Yes (Other)
  Sender: FDA-Public Use
  Company Number: NL-AUROBINDO-AUR-APL-2020-054204

PATIENT
  Sex: Male
  Weight: 78 kg

DRUGS (3)
  1. MORFINE [Concomitant]
     Active Substance: MORPHINE
     Indication: PRODUCT USED FOR UNKNOWN INDICATION
     Dosage: 10 MILLIGRAM, ONCE A DAY
     Dates: start: 20200907, end: 20200907
  2. OXYCODON 5 MG, PROLONGED RELEASED TABLET [Suspect]
     Active Substance: OXYCODONE
     Indication: PROCEDURAL PAIN
     Dosage: 5 MILLIGRAM
     Dates: start: 20200907
  3. PARACETAMOL [Concomitant]
     Active Substance: ACETAMINOPHEN
     Indication: PRODUCT USED FOR UNKNOWN INDICATION
     Dosage: 1000 MILLIGRAM, EVERY OTHER DAY
     Dates: start: 20200907, end: 20200907

REACTIONS (1)
  - Respiratory disorder [Recovered/Resolved]
